FAERS Safety Report 11128061 (Version 2)
Quarter: 2015Q3

REPORT INFORMATION
  Report Type: Spontaneous
  Country: US (occurrence: US)
  Receive Date: 20150521
  Receipt Date: 20150707
  Transmission Date: 20151125
  Serious: Yes (Hospitalization)
  Sender: FDA-Public Use
  Company Number: US-ASTELLAS-2015US013218

PATIENT
  Age: 83 Year
  Sex: Male

DRUGS (2)
  1. MIRALAX [Suspect]
     Active Substance: POLYETHYLENE GLYCOL 3350
     Indication: CONSTIPATION
     Dosage: UNK, UNKNOWN FREQ.
     Route: 065
  2. XTANDI [Suspect]
     Active Substance: ENZALUTAMIDE
     Indication: PROSTATE CANCER
     Route: 048
     Dates: start: 20141118

REACTIONS (7)
  - Abdominal discomfort [Unknown]
  - Decreased appetite [Unknown]
  - Tooth disorder [Unknown]
  - Asthenia [Unknown]
  - Gastrointestinal disorder [Unknown]
  - Gingival disorder [Unknown]
  - Headache [Unknown]

NARRATIVE: CASE EVENT DATE: 201502
